FAERS Safety Report 23831967 (Version 1)
Quarter: 2024Q2

REPORT INFORMATION
  Report Type: Report from Study
  Country: FR (occurrence: FR)
  Receive Date: 20240508
  Receipt Date: 20240508
  Transmission Date: 20240716
  Serious: Yes (Other)
  Sender: FDA-Public Use
  Company Number: FR-Stemline Therapeutics, Inc.-2024ST002614

PATIENT
  Sex: Female

DRUGS (2)
  1. ORSERDU [Suspect]
     Active Substance: ELACESTRANT
     Indication: Breast cancer
     Dosage: 345 MG PER DAY
     Route: 048
     Dates: end: 20240418
  2. ORSERDU [Suspect]
     Active Substance: ELACESTRANT
     Dosage: 172 MG PER DAY
     Route: 048
     Dates: start: 20240419

REACTIONS (6)
  - Bradycardia [Unknown]
  - Toxicity to various agents [Unknown]
  - Abdominal pain upper [Unknown]
  - Nausea [Unknown]
  - Dyspnoea [Unknown]
  - Fatigue [Unknown]
